FAERS Safety Report 14633580 (Version 2)
Quarter: 2018Q1

REPORT INFORMATION
  Report Type: Spontaneous
  Country: PK (occurrence: PK)
  Receive Date: 20180314
  Receipt Date: 20180320
  Transmission Date: 20180509
  Serious: Yes (Other)
  Sender: FDA-Public Use
  Company Number: PK-SUN PHARMACEUTICAL INDUSTRIES LTD-2018RR-165943

PATIENT
  Age: 26 Year
  Sex: Male

DRUGS (1)
  1. TEMOZOLOMIDE. [Suspect]
     Active Substance: TEMOZOLOMIDE
     Indication: GLIOBLASTOMA
     Dosage: SIX CYCLES OF TMZ (150 MG/M2, DAYS ONE TO FIVE, EVERY 28 DAYS)
     Route: 065

REACTIONS (1)
  - Acute lymphocytic leukaemia [Unknown]
